FAERS Safety Report 17554125 (Version 2)
Quarter: 2020Q1

REPORT INFORMATION
  Report Type: Spontaneous
  Country: BR (occurrence: BR)
  Receive Date: 20200318
  Receipt Date: 20200321
  Transmission Date: 20200409
  Serious: Yes (Other)
  Sender: FDA-Public Use
  Company Number: BR-AMGEN-BRASP2014061351

PATIENT
  Age: 50 Year
  Sex: Female
  Weight: 80 kg

DRUGS (6)
  1. ALPRAZOLAM. [Concomitant]
     Active Substance: ALPRAZOLAM
     Indication: DEPRESSION
     Dosage: 2 MILLIGRAM, QD
     Dates: start: 2010
  2. METHOTREXATE. [Concomitant]
     Active Substance: METHOTREXATE
     Dosage: 8 DOSAGE FORM
     Dates: start: 2010
  3. RIVOTRIL [Concomitant]
     Active Substance: CLONAZEPAM
     Indication: HEADACHE
     Dosage: UNK, AS NECESSARY
  4. CARBAMAZEPINE. [Concomitant]
     Active Substance: CARBAMAZEPINE
     Indication: DEPRESSION
     Dosage: 200 MILLIGRAM, BID
     Dates: start: 2010
  5. ENBREL [Suspect]
     Active Substance: ETANERCEPT
     Indication: RHEUMATOID ARTHRITIS
     Dosage: 50 MG, WEEKLY
     Route: 058
     Dates: start: 201405
  6. CITALOPRAM [Concomitant]
     Active Substance: CITALOPRAM HYDROBROMIDE
     Indication: DEPRESSION
     Dosage: 20 MILLIGRAM, BID
     Dates: start: 2010

REACTIONS (6)
  - Injection site erythema [Unknown]
  - Injection site swelling [Unknown]
  - Injection site pruritus [Unknown]
  - Feeling abnormal [Unknown]
  - Pain [Unknown]
  - Injection site mass [Unknown]

NARRATIVE: CASE EVENT DATE: 2014
